FAERS Safety Report 9312945 (Version 1)
Quarter: 2013Q2

REPORT INFORMATION
  Report Type: Spontaneous
  Country: US (occurrence: US)
  Receive Date: 20130528
  Receipt Date: 20130528
  Transmission Date: 20140414
  Serious: No
  Sender: FDA-Public Use
  Company Number: US-ABBOTT-13P-163-1063792-00

PATIENT
  Age: 65 Year
  Sex: Male
  Weight: 88.53 kg

DRUGS (4)
  1. ANDROGEL [Suspect]
     Indication: BLOOD TESTOSTERONE DECREASED
     Dosage: TWO PUMP ACTUATIONS
     Dates: start: 201206
  2. DETROL [Concomitant]
     Indication: PRODUCT USED FOR UNKNOWN INDICATION
  3. PREVACID [Concomitant]
     Indication: PRODUCT USED FOR UNKNOWN INDICATION
  4. UNKNOWN MEDICATION [Concomitant]
     Indication: BLOOD URIC ACID INCREASED

REACTIONS (5)
  - Epididymitis [Not Recovered/Not Resolved]
  - Application site rash [Not Recovered/Not Resolved]
  - Dry skin [Not Recovered/Not Resolved]
  - Scrotal pain [Recovering/Resolving]
  - Scrotal swelling [Recovering/Resolving]
